FAERS Safety Report 18332003 (Version 12)
Quarter: 2021Q2

REPORT INFORMATION
  Report Type: Spontaneous
  Country: US (occurrence: US)
  Receive Date: 20200930
  Receipt Date: 20210630
  Transmission Date: 20210717
  Serious: Yes (Other)
  Sender: FDA-Public Use
  Company Number: US-BIOVITRUM-2020US5155

PATIENT
  Age: 58 Year
  Sex: Female

DRUGS (18)
  1. DEXILANT [Concomitant]
     Active Substance: DEXLANSOPRAZOLE
  2. METHOTREXATE. [Concomitant]
     Active Substance: METHOTREXATE
  3. PHOLIC ACIC [Concomitant]
  4. IMITREX [Concomitant]
     Active Substance: SUMATRIPTAN SUCCINATE
  5. VOLTAREN [Concomitant]
     Active Substance: DICLOFENAC SODIUM
  6. BENTYL [Concomitant]
     Active Substance: DICYCLOMINE HYDROCHLORIDE
  7. PLAQUENIL [Concomitant]
     Active Substance: HYDROXYCHLOROQUINE SULFATE
  8. BIOTIN [Concomitant]
     Active Substance: BIOTIN
  9. ECONAZOLE NITRATE. [Concomitant]
     Active Substance: ECONAZOLE NITRATE
  10. KINERET [Suspect]
     Active Substance: ANAKINRA
     Indication: PERICARDIAL DISEASE
     Route: 058
     Dates: start: 20200922
  11. TOPAMAX [Concomitant]
     Active Substance: TOPIRAMATE
  12. VITAMIN D3 [Concomitant]
     Active Substance: CHOLECALCIFEROL
  13. KINERET [Suspect]
     Active Substance: ANAKINRA
     Route: 058
     Dates: start: 20200922, end: 20201019
  14. BACLOFEN. [Concomitant]
     Active Substance: BACLOFEN
  15. PREDNISONE. [Concomitant]
     Active Substance: PREDNISONE
  16. ZYRTEC [Concomitant]
     Active Substance: CETIRIZINE HYDROCHLORIDE
  17. TYLENOL [Concomitant]
     Active Substance: ACETAMINOPHEN
  18. VITAMIN B12 [Concomitant]
     Active Substance: CYANOCOBALAMIN

REACTIONS (31)
  - Back pain [Unknown]
  - Vision blurred [Unknown]
  - Injection site erythema [Unknown]
  - Injection site induration [Unknown]
  - Cellulitis [Unknown]
  - Contusion [Unknown]
  - Mass [Unknown]
  - Injection site mass [Unknown]
  - Injection site discomfort [Unknown]
  - Rash [Unknown]
  - Pruritus [Unknown]
  - Injection site haemorrhage [Unknown]
  - Nausea [Unknown]
  - Renal impairment [Unknown]
  - Anxiety [Unknown]
  - Stress [Unknown]
  - Headache [Unknown]
  - Injection site warmth [Unknown]
  - Localised infection [Unknown]
  - Internal hernia [Unknown]
  - Abdominal pain [Unknown]
  - Injection site rash [Unknown]
  - Injection site pruritus [Unknown]
  - Injection site urticaria [Unknown]
  - Product dose omission issue [Unknown]
  - Urinary tract infection [Unknown]
  - Syringe issue [Unknown]
  - Off label use [Unknown]
  - Dry eye [Unknown]
  - Inflammation [Unknown]
  - Injection site pain [Unknown]

NARRATIVE: CASE EVENT DATE: 20200922
